FAERS Safety Report 6993301 (Version 2)
Quarter: 2013Q3

REPORT INFORMATION
  Report Type: Report from Study
  Country: DE (occurrence: DE)
  Receive Date: 20090513
  Receipt Date: 20130923
  Transmission Date: 20140515
  Serious: Yes (Death, Hospitalization, Other)
  Sender: FDA-Public Use
  Company Number: DE-ALEXION-A200900154

PATIENT
  Age: 37 Year
  Sex: Female

DRUGS (5)
  1. SOLIRIS [Suspect]
     Indication: AUTOIMMUNE HAEMOLYTIC ANAEMIA
     Dosage: 600 MG, UNK
     Route: 042
     Dates: start: 20081222, end: 200901
  2. SOLIRIS [Suspect]
     Indication: OFF LABEL USE
  3. LEVOFLOXACIN [Concomitant]
     Indication: PROPHYLAXIS
     Dosage: 500 MG, UNK
     Route: 048
     Dates: end: 200901
  4. NOXAFIL [Concomitant]
     Indication: PROPHYLAXIS
     Dosage: 5 ML, BID
     Route: 048
     Dates: end: 200901
  5. PREDNISOLON                        /00016201/ [Concomitant]
     Indication: HAEMOLYSIS
     Dosage: 30 MG/D, UNK
     Route: 048
     Dates: start: 20081213, end: 200901

REACTIONS (3)
  - Sepsis [Fatal]
  - Pneumonia [Unknown]
  - Haemolysis [Unknown]
